FAERS Safety Report 15608587 (Version 1)
Quarter: 2018Q4

REPORT INFORMATION
  Report Type: Spontaneous
  Country: US (occurrence: US)
  Receive Date: 20181112
  Receipt Date: 20181112
  Transmission Date: 20190205
  Serious: Yes (Other)
  Sender: FDA-Public Use
  Company Number: US-IMPAX LABORATORIES, LLC-2018-IPXL-03710

PATIENT
  Age: 65 Year
  Sex: Male

DRUGS (3)
  1. ADRENACLICK [Suspect]
     Active Substance: EPINEPHRINE
     Indication: PRODUCT USE IN UNAPPROVED INDICATION
  2. ADRENACLICK [Suspect]
     Active Substance: EPINEPHRINE
     Indication: PULMONARY HAEMORRHAGE
     Dosage: UNK
     Route: 065
  3. TRANEXAMIC ACID. [Suspect]
     Active Substance: TRANEXAMIC ACID
     Indication: PULMONARY HAEMORRHAGE
     Dosage: UNK
     Route: 065

REACTIONS (3)
  - Obstructive airways disorder [Recovered/Resolved]
  - Incorrect route of product administration [Unknown]
  - Drug ineffective for unapproved indication [Unknown]
